FAERS Safety Report 5278921-X (Version None)
Quarter: 2007Q1

REPORT INFORMATION
  Report Type: 
  Country: None (occurrence: None)
  Receive Date: 20070328
  Receipt Date: 20070316
  Transmission Date: 20070707
  Serious: Yes (Death)
  Sender: FDA-Public Use
  Company Number: CA-ROCHE-488002

PATIENT
  Age: 46 Year
  Sex: Female

DRUGS (3)
  1. NAPROXEN [Suspect]
     Indication: DRUG USE FOR UNKNOWN INDICATION
     Route: 065
  2. COMBIVENT [Concomitant]
     Dosage: ROUTE OF ADMINISTRATION REPORTED AS AER.
     Route: 065
  3. PULMICORT [Concomitant]
     Route: 065

REACTIONS (9)
  - AGITATION [None]
  - ASTHMA [None]
  - BRONCHIECTASIS [None]
  - DEATH [None]
  - DISEASE PROGRESSION [None]
  - DYSPNOEA [None]
  - OBSTRUCTIVE AIRWAYS DISORDER [None]
  - SLEEP DISORDER [None]
  - WHEEZING [None]
